FAERS Safety Report 6347725-9 (Version None)
Quarter: 2009Q3

REPORT INFORMATION
  Report Type: 
  Country: None (occurrence: None)
  Receive Date: 20090910
  Receipt Date: 20090831
  Transmission Date: 20100115
  Serious: Yes (Hospitalization)
  Sender: FDA-Public Use
  Company Number: JP-PFIZER INC-2009262970

PATIENT
  Age: 72 Year

DRUGS (10)
  1. SUNITINIB MALATE [Suspect]
     Indication: METASTATIC RENAL CELL CARCINOMA
     Dosage: 50 MG, 1X/DAY
     Route: 048
     Dates: start: 20090623
  2. AMLODIPINE [Concomitant]
     Dosage: UNK
     Route: 048
  3. BLOPRESS [Concomitant]
     Route: 048
     Dates: end: 20090708
  4. GASMOTIN [Concomitant]
     Dosage: UNK
     Route: 048
  5. CONSTAN [Concomitant]
     Dosage: UNK
     Route: 048
  6. LENDORMIN [Concomitant]
     Dosage: UNK
     Route: 048
     Dates: start: 20090625
  7. SENNA [Concomitant]
     Route: 048
     Dates: start: 20090625, end: 20090723
  8. LASIX [Concomitant]
     Route: 048
     Dates: start: 20090709, end: 20090711
  9. ASPARA K [Concomitant]
     Route: 048
     Dates: start: 20090709, end: 20090711
  10. IRBESARTAN [Concomitant]
     Dosage: UNK
     Route: 048
     Dates: start: 20090709

REACTIONS (2)
  - HYPONATRAEMIA [None]
  - PLATELET COUNT DECREASED [None]
